FAERS Safety Report 8360584-8 (Version None)
Quarter: 2012Q2

REPORT INFORMATION
  Report Type: 
  Country: None (occurrence: None)
  Receive Date: 20120515
  Receipt Date: 20120508
  Transmission Date: 20120825
  Serious: Yes (Other)
  Sender: FDA-Public Use
  Company Number: US-ASTRAZENECA-2012SE17783

PATIENT
  Age: 54 Year
  Sex: Male
  Weight: 206.4 kg

DRUGS (4)
  1. SEROQUEL [Suspect]
     Route: 048
     Dates: start: 20110101
  2. SEROQUEL [Suspect]
     Route: 048
  3. SEROQUEL [Suspect]
     Indication: BIPOLAR DISORDER
     Route: 048
     Dates: start: 20080101, end: 20110101
  4. METHERGINE [Concomitant]
     Indication: BIPOLAR DISORDER
     Route: 048

REACTIONS (12)
  - EYE DISORDER [None]
  - CATARACT [None]
  - SLEEP APNOEA SYNDROME [None]
  - INTENTIONAL DRUG MISUSE [None]
  - BLOOD PRESSURE INCREASED [None]
  - BLOOD CHOLESTEROL INCREASED [None]
  - FEELING ABNORMAL [None]
  - WEIGHT INCREASED [None]
  - DISORIENTATION [None]
  - DIABETES MELLITUS [None]
  - SEDATION [None]
  - OFF LABEL USE [None]
